FAERS Safety Report 16915736 (Version 1)
Quarter: 2019Q4

REPORT INFORMATION
  Report Type: Spontaneous
  Country: US (occurrence: US)
  Receive Date: 20190822
  Receipt Date: 20190822
  Transmission Date: 20200122
  Serious: No
  Sender: FDA-Public Use
  Company Number: None

PATIENT
  Sex: Female

DRUGS (1)
  1. VITRAKVI [Suspect]
     Active Substance: LAROTRECTINIB
     Indication: BREAST CANCER
     Route: 048
     Dates: start: 201906

REACTIONS (5)
  - Abdominal distension [None]
  - Drug ineffective [None]
  - Dizziness [None]
  - Nausea [None]
  - Malignant neoplasm progression [None]
